FAERS Safety Report 8728569 (Version 2)
Quarter: 2012Q4

REPORT INFORMATION
  Report Type: 
  Country: JP (occurrence: JP)
  Receive Date: 20120817
  Receipt Date: 20120829
  Transmission Date: 20130627
  Serious: Yes (Other)
  Sender: FDA-Public Use
  Company Number: JP-ASTELLAS-2012JP007551

PATIENT
  Age: 75 Year
  Sex: Female

DRUGS (3)
  1. VESICARE [Suspect]
     Dosage: 2.5 mg, UID/QD
     Route: 048
  2. EBRANTIL                           /00631801/ [Concomitant]
     Route: 048
  3. ANTIHYPERTENSIVES [Concomitant]
     Route: 048

REACTIONS (2)
  - Blood pressure decreased [Unknown]
  - Memory impairment [Unknown]
